FAERS Safety Report 5947099-9 (Version None)
Quarter: 2008Q4

REPORT INFORMATION
  Report Type: 
  Country: None (occurrence: None)
  Receive Date: 20081110
  Receipt Date: 20081030
  Transmission Date: 20090506
  Serious: Yes (Hospitalization)
  Sender: FDA-Public Use
  Company Number: US-JNJCH-2008053868

PATIENT
  Age: 6 Year
  Sex: Male

DRUGS (3)
  1. DEXTROMETHORPHAN [Suspect]
     Indication: DRUG USE FOR UNKNOWN INDICATION
     Dosage: TEXT:ESTIMATED AMOUNT OF 40 MG/KG
     Route: 048
  2. SERTRALINE [Suspect]
     Indication: DRUG USE FOR UNKNOWN INDICATION
     Dosage: TEXT:UNSPECIFIED
     Route: 065
  3. CAFFEINE [Suspect]
     Indication: DRUG USE FOR UNKNOWN INDICATION
     Dosage: TEXT:UNSPECIFIED
     Route: 065

REACTIONS (3)
  - DRUG INTERACTION [None]
  - OVERDOSE [None]
  - SEROTONIN SYNDROME [None]
